FAERS Safety Report 8780282 (Version 1)
Quarter: 2012Q4

REPORT INFORMATION
  Report Type: Spontaneous
  Country: US (occurrence: None)
  Receive Date: 20120905
  Receipt Date: 20120905
  Transmission Date: 20130627
  Serious: Yes (Disabling)
  Sender: FDA-Public Use
  Company Number: None

PATIENT
  Sex: Female
  Weight: 72.12 kg

DRUGS (1)
  1. CRESTOR [Suspect]
     Indication: CHOLESTEROL
     Dosage: 1 Tab
     Dates: start: 2006, end: 20120721

REACTIONS (2)
  - Gait disturbance [None]
  - Arthralgia [None]
